FAERS Safety Report 13877697 (Version 4)
Quarter: 2018Q1

REPORT INFORMATION
  Report Type: Report from Study
  Country: US (occurrence: US)
  Receive Date: 20170817
  Receipt Date: 20180103
  Transmission Date: 20180508
  Serious: Yes (Hospitalization)
  Sender: FDA-Public Use
  Company Number: US-EISAI MEDICAL RESEARCH-EC-2017-028533

PATIENT
  Age: 69 Year
  Sex: Female
  Weight: 85.27 kg

DRUGS (17)
  1. LENVIMA [Suspect]
     Active Substance: LENVATINIB
     Indication: THYROID CANCER
     Route: 048
     Dates: start: 20170607, end: 201708
  2. LENVIMA [Suspect]
     Active Substance: LENVATINIB
     Route: 048
     Dates: start: 201708, end: 2017
  3. LISINOPRIL. [Concomitant]
     Active Substance: LISINOPRIL
  4. XARELTO [Concomitant]
     Active Substance: RIVAROXABAN
  5. SYNTHROID [Concomitant]
     Active Substance: LEVOTHYROXINE SODIUM
  6. FOLIC ACID. [Concomitant]
     Active Substance: FOLIC ACID
  7. LENVIMA [Suspect]
     Active Substance: LENVATINIB
     Route: 048
     Dates: start: 201712
  8. CYANOCOBALAMIN INJECTION [Concomitant]
     Active Substance: CYANOCOBALAMIN
  9. GABAPENTIN. [Concomitant]
     Active Substance: GABAPENTIN
  10. BIOTENE NOS [Concomitant]
     Active Substance: CETYLPYRIDINIUM CHLORIDE OR SODIUM FLUORIDE OR SODIUM MONOFLUOROPHOSPHATE OR GLUCOSE OXIDASE\LACTOFERRIN\LACTOPEROXIDASE BOVINE\LYSOZYME
  11. METFORMIN [Concomitant]
     Active Substance: METFORMIN HYDROCHLORIDE
  12. MAGNESIUM [Concomitant]
     Active Substance: MAGNESIUM
  13. AMLODIPINE [Concomitant]
     Active Substance: AMLODIPINE BESYLATE
  14. CHLORHEXIDINE [Concomitant]
     Active Substance: CHLORHEXIDINE
  15. LENVIMA [Suspect]
     Active Substance: LENVATINIB
     Route: 048
     Dates: start: 2017, end: 20171130
  16. LENVIMA [Suspect]
     Active Substance: LENVATINIB
     Route: 048
     Dates: start: 20171204, end: 201712
  17. PEPCID [Concomitant]
     Active Substance: FAMOTIDINE

REACTIONS (30)
  - Blood pressure fluctuation [Unknown]
  - Palpitations [Unknown]
  - Hypotension [Unknown]
  - Neck mass [Unknown]
  - Dizziness [Not Recovered/Not Resolved]
  - Blister [Unknown]
  - Glossitis [Unknown]
  - Headache [Not Recovered/Not Resolved]
  - Decreased appetite [Unknown]
  - Swollen tongue [Unknown]
  - Vomiting [Unknown]
  - Abdominal pain upper [Unknown]
  - Dry mouth [Not Recovered/Not Resolved]
  - Back pain [Not Recovered/Not Resolved]
  - Urinary tract infection [Not Recovered/Not Resolved]
  - Cough [Not Recovered/Not Resolved]
  - Burn oesophageal [Unknown]
  - Aptyalism [Unknown]
  - Diarrhoea [Unknown]
  - Hypertension [Not Recovered/Not Resolved]
  - Muscular weakness [Unknown]
  - Nausea [Unknown]
  - Weight decreased [Unknown]
  - Blood magnesium decreased [Unknown]
  - Odynophagia [Not Recovered/Not Resolved]
  - Glossodynia [Recovered/Resolved]
  - Tongue exfoliation [Recovered/Resolved]
  - Asthenia [Not Recovered/Not Resolved]
  - Dyspepsia [Unknown]
  - Feeding disorder [Recovered/Resolved]

NARRATIVE: CASE EVENT DATE: 2017
